FAERS Safety Report 4312877-9 (Version None)
Quarter: 2004Q1

REPORT INFORMATION
  Report Type: 
  Country: None (occurrence: None)
  Receive Date: 20040304
  Receipt Date: 20040212
  Transmission Date: 20041129
  Serious: Yes (Other)
  Sender: FDA-Public Use
  Company Number: JP_040202636

PATIENT
  Sex: Female

DRUGS (5)
  1. ONCOVIN [Suspect]
     Indication: RETINOBLASTOMA BILATERAL
  2. CYCLOPHOSPHAMIDE [Concomitant]
  3. ADRIAMYCIN (DOXORUBICIN) [Concomitant]
  4. METHOTREXATE [Concomitant]
  5. RADIATION THERAPY [Concomitant]

REACTIONS (3)
  - BONE SARCOMA [None]
  - METASTASES TO LUNG [None]
  - SPINDLE CELL SARCOMA [None]
